FAERS Safety Report 18461006 (Version 1)
Quarter: 2020Q4

REPORT INFORMATION
  Report Type: Spontaneous
  Country: CN (occurrence: CN)
  Receive Date: 20201104
  Receipt Date: 20201104
  Transmission Date: 20210114
  Serious: Yes (Other)
  Sender: FDA-Public Use
  Company Number: CN-ROCHE-2704222

PATIENT
  Age: 60 Year
  Sex: Female

DRUGS (10)
  1. VINORELBINE [Concomitant]
     Active Substance: VINORELBINE TARTRATE
  2. PACLITAXEL. [Concomitant]
     Active Substance: PACLITAXEL
  3. HERCEPTIN [Suspect]
     Active Substance: TRASTUZUMAB
     Route: 065
     Dates: start: 20161018
  4. PYROTINIB [Concomitant]
     Active Substance: PYROTINIB
  5. EPIRUBICIN [Concomitant]
     Active Substance: EPIRUBICIN
  6. XELODA [Suspect]
     Active Substance: CAPECITABINE
     Indication: BREAST CANCER
     Route: 048
     Dates: start: 20160724
  7. HERCEPTIN [Suspect]
     Active Substance: TRASTUZUMAB
     Indication: BREAST CANCER
     Route: 065
     Dates: start: 20160905
  8. DOCETAXEL. [Concomitant]
     Active Substance: DOCETAXEL
  9. CARBOPLATIN. [Concomitant]
     Active Substance: CARBOPLATIN
  10. LAPATINIB [Concomitant]
     Active Substance: LAPATINIB

REACTIONS (1)
  - Myelosuppression [Unknown]
